FAERS Safety Report 20086439 (Version 1)
Quarter: 2021Q4

REPORT INFORMATION
  Report Type: Spontaneous
  Country: ES (occurrence: None)
  Receive Date: 20211118
  Receipt Date: 20211118
  Transmission Date: 20220303
  Serious: Yes (Life-Threatening, Hospitalization)
  Sender: FDA-Public Use
  Company Number: 2021A804843

PATIENT
  Sex: Male

DRUGS (1)
  1. DAPAGLIFLOZIN [Suspect]
     Active Substance: DAPAGLIFLOZIN
     Indication: Type 2 diabetes mellitus
     Dosage: 10 MG CADA 24H
     Route: 048
     Dates: start: 20180913

REACTIONS (1)
  - Euglycaemic diabetic ketoacidosis [Recovering/Resolving]

NARRATIVE: CASE EVENT DATE: 20211025
